FAERS Safety Report 4342739-2 (Version None)
Quarter: 2004Q2

REPORT INFORMATION
  Report Type: 
  Country: None (occurrence: None)
  Receive Date: 20040409
  Receipt Date: 20030331
  Transmission Date: 20050107
  Serious: Yes (Hospitalization)
  Sender: FDA-Public Use
  Company Number: 03P-163-0215515-00

PATIENT
  Age: 52 Year
  Sex: Female

DRUGS (1)
  1. DEPAKOTE [Suspect]
     Indication: BIPOLAR DISORDER
     Dosage: 250 MG, 3 IN 1 D, PER ORAL
     Route: 048
     Dates: start: 20011003

REACTIONS (4)
  - AMMONIA INCREASED [None]
  - GENERALISED ANXIETY DISORDER [None]
  - MANIA [None]
  - PSYCHOTIC DISORDER [None]
